FAERS Safety Report 12197063 (Version 3)
Quarter: 2017Q2

REPORT INFORMATION
  Report Type: Report from Study
  Country: US (occurrence: US)
  Receive Date: 20160321
  Receipt Date: 20170416
  Transmission Date: 20170830
  Serious: Yes (Hospitalization, Other)
  Sender: FDA-Public Use
  Company Number: US-BAXTER-2016BAX012260

PATIENT
  Age: 7 Year
  Sex: Female
  Weight: 23.8 kg

DRUGS (30)
  1. CYCLOPHOSPHAMIDE FOR INJECTION, USP [Suspect]
     Active Substance: CYCLOPHOSPHAMIDE
     Dosage: OVER 30-60 MINUTES ON DAYS 1-5, COURSE B: CYCLES 2, 4, AND 6 (CYCLE=21 DAYS)
     Route: 042
     Dates: start: 20160104, end: 20160108
  2. MELATONIN [Concomitant]
     Active Substance: MELATONIN
     Indication: PRODUCT USED FOR UNKNOWN INDICATION
     Route: 065
  3. ALUMINIUM HYDROXIDE [Concomitant]
     Active Substance: ALUMINUM HYDROXIDE
     Indication: PRODUCT USED FOR UNKNOWN INDICATION
     Route: 065
  4. METHOTREXATE SODIUM. [Suspect]
     Active Substance: METHOTREXATE SODIUM
     Dosage: ON DAY 1 OVER 3 HOURS, COURSE B: CYCLES 2, 4, AND 6 (CYCLE=21 DAYS)
     Route: 042
     Dates: start: 20160104, end: 20160104
  5. ACETAMINOPHEN-HYDROCODONE [Concomitant]
     Indication: PRODUCT USED FOR UNKNOWN INDICATION
     Route: 065
  6. LORAZEPAM. [Concomitant]
     Active Substance: LORAZEPAM
     Indication: PRODUCT USED FOR UNKNOWN INDICATION
     Route: 065
  7. SCOPOLAMINE [Concomitant]
     Active Substance: SCOPOLAMINE
     Indication: PRODUCT USED FOR UNKNOWN INDICATION
     Route: 065
  8. SENNA [Concomitant]
     Active Substance: SENNA LEAF\SENNOSIDES\SENNOSIDES A AND B
     Indication: PRODUCT USED FOR UNKNOWN INDICATION
     Route: 065
  9. OLANZAPINE. [Concomitant]
     Active Substance: OLANZAPINE
     Indication: PRODUCT USED FOR UNKNOWN INDICATION
     Route: 065
  10. MAALOX DIPHENHYDRAMINE LIDOCAINE SUSPENSION [Concomitant]
     Indication: PRODUCT USED FOR UNKNOWN INDICATION
     Route: 065
  11. IFOSFAMIDE FOR INJECTION [Suspect]
     Active Substance: IFOSFAMIDE
     Indication: ANAPLASTIC LARGE CELL LYMPHOMA T- AND NULL-CELL TYPES
     Dosage: OVER 60 MINUTES ON DAYS 1-5, COURSE A: CYCLES 1, 3, AND 5 (CYCLE = 21 DAYS)
     Route: 042
     Dates: start: 20151215, end: 20151219
  12. CRIZOTINIB [Suspect]
     Active Substance: CRIZOTINIB
     Dosage: DAYS 1-21, COURSE B: CYCLES 2, 4, AND 6 (CYCLE=21 DAYS)
     Route: 048
     Dates: start: 20160104, end: 20160118
  13. METHOTREXATE SODIUM. [Suspect]
     Active Substance: METHOTREXATE SODIUM
     Dosage: ON DAY 1 OVER 3 HOURS, COURSE A: CYCLES 1, 3, AND 5 (CYCLE = 21 DAYS)
     Route: 042
     Dates: start: 20151215, end: 20151215
  14. DEXAMETHASONE. [Suspect]
     Active Substance: DEXAMETHASONE
     Indication: ANAPLASTIC LARGE CELL LYMPHOMA T- AND NULL-CELL TYPES
     Dosage: DAILY (QD) ON DAYS 1-2, PROPHASE (CYCLE 0=5 DAYS)
     Route: 048
  15. DEXAMETHASONE. [Suspect]
     Active Substance: DEXAMETHASONE
     Dosage: ON DAYS 1-5, COURSE A: CYCLES 1, 3, AND 5 (CYCLE = 21 DAYS)
     Route: 048
     Dates: start: 20151215
  16. HYDROCORTISONE. [Suspect]
     Active Substance: HYDROCORTISONE
     Indication: ANAPLASTIC LARGE CELL LYMPHOMA T- AND NULL-CELL TYPES
     Dosage: 7.5-12 MG ON DAY 1 (AGE BASED DOSING) PROPHASE
     Route: 037
  17. VP-16 [Suspect]
     Active Substance: ETOPOSIDE
     Indication: ANAPLASTIC LARGE CELL LYMPHOMA T- AND NULL-CELL TYPES
     Dosage: OVER 2 HOURS ON DAYS 4 AND 5, COURSE A: CYCLES 1, 3, AND 5 (CYCLE = 21 DAYS)
     Route: 042
     Dates: start: 20151215, end: 20151220
  18. DOXORUBICIN HYDROCHLORIDE. [Suspect]
     Active Substance: DOXORUBICIN HYDROCHLORIDE
     Indication: ANAPLASTIC LARGE CELL LYMPHOMA T- AND NULL-CELL TYPES
     Dosage: OVER 1-15 MINUTES ON DAYS 4 AND 5, COURSE B: CYCLES 2, 4, AND 6 (CYCLE=21 DAYS)
     Route: 042
     Dates: start: 20160104, end: 20160108
  19. DIPHENHYDRAMINE/LIDOCAINE [Concomitant]
     Indication: PRODUCT USED FOR UNKNOWN INDICATION
     Route: 065
  20. MAGNESIUM HYDROXIDE. [Concomitant]
     Active Substance: MAGNESIUM HYDROXIDE
     Indication: PRODUCT USED FOR UNKNOWN INDICATION
     Route: 065
  21. DEXAMETHASONE. [Suspect]
     Active Substance: DEXAMETHASONE
     Dosage: TWICE DAILY (BID) ON DAYS 3-5, PROPHASE (CYCLE 0=5 DAYS)
     Route: 048
  22. DEXAMETHASONE. [Suspect]
     Active Substance: DEXAMETHASONE
     Dosage: ON DAYS 1-5, COURSE B: CYCLES 2, 4, AND 6 (CYCLE=21 DAYS)
     Route: 048
     Dates: start: 20160104, end: 20160108
  23. CYTARABINE. [Suspect]
     Active Substance: CYTARABINE
     Indication: ANAPLASTIC LARGE CELL LYMPHOMA T- AND NULL-CELL TYPES
     Dosage: 15-24 MG ON DAY 1 (AGE-BASED DOSING) PROPHASE
     Route: 037
  24. CYTARABINE. [Suspect]
     Active Substance: CYTARABINE
     Dosage: OVER 1-30 MINUTES; Q12 HOUR ON DAYS 4 AND 5 (TOTAL 4 DOSES), COURSE A: CYCLES 1, 3, AND 5
     Route: 042
     Dates: start: 20151215, end: 20151219
  25. TRIMETHOPRIM SULFAMETHOXAZOLE [Concomitant]
     Active Substance: SULFAMETHOXAZOLE\TRIMETHOPRIM
     Indication: PRODUCT USED FOR UNKNOWN INDICATION
     Route: 065
  26. LIDOCAINE-PRILOCAINE CREAM [Concomitant]
     Indication: PRODUCT USED FOR UNKNOWN INDICATION
     Route: 065
  27. CETIRIZINE [Concomitant]
     Active Substance: CETIRIZINE HYDROCHLORIDE
     Indication: PRODUCT USED FOR UNKNOWN INDICATION
     Route: 065
  28. CYCLOPHOSPHAMIDE FOR INJECTION, USP [Suspect]
     Active Substance: CYCLOPHOSPHAMIDE
     Indication: ANAPLASTIC LARGE CELL LYMPHOMA T- AND NULL-CELL TYPES
     Dosage: OVER 30-60 MINUTES ON DAYS 1-2, PROPHASE (CYCLE 0=5 DAYS)
     Route: 042
  29. CRIZOTINIB [Suspect]
     Active Substance: CRIZOTINIB
     Indication: ANAPLASTIC LARGE CELL LYMPHOMA T- AND NULL-CELL TYPES
     Dosage: ON DAYS 1-21, COURSE A: CYCLES 1, 3, AND 5 (CYCLE = 21 DAYS)
     Route: 048
     Dates: start: 20151215
  30. METHOTREXATE SODIUM. [Suspect]
     Active Substance: METHOTREXATE SODIUM
     Indication: ANAPLASTIC LARGE CELL LYMPHOMA T- AND NULL-CELL TYPES
     Dosage: 7.5-12 MG ON DAY 1 (AGE BASED DOSING), PROPHASE (CYCLE 0=5 DAYS)
     Route: 037

REACTIONS (6)
  - Alveolar lung disease [Unknown]
  - Pneumonitis [Unknown]
  - Respiratory failure [Recovering/Resolving]
  - Pleural effusion [Unknown]
  - Pulmonary oedema [Unknown]
  - Pyrexia [Recovering/Resolving]

NARRATIVE: CASE EVENT DATE: 20160119
